FAERS Safety Report 15623597 (Version 1)
Quarter: 2018Q4

REPORT INFORMATION
  Report Type: Spontaneous
  Country: US (occurrence: US)
  Receive Date: 20181115
  Receipt Date: 20181115
  Transmission Date: 20190205
  Serious: No
  Sender: FDA-Public Use
  Company Number: US-BAYER-2018-210460

PATIENT
  Age: 68 Year
  Sex: Female
  Weight: 56.96 kg

DRUGS (2)
  1. LOTRIMIN ULTRA [Suspect]
     Active Substance: BUTENAFINE HYDROCHLORIDE
     Indication: THERAPEUTIC SKIN CARE TOPICAL
     Dosage: 1 DF, UNK
     Route: 061
     Dates: start: 20181112
  2. COCONUT OIL [Concomitant]
     Active Substance: COCONUT OIL

REACTIONS (2)
  - Product use in unapproved indication [Unknown]
  - Circumstance or information capable of leading to medication error [Unknown]

NARRATIVE: CASE EVENT DATE: 20181112
